FAERS Safety Report 9118755 (Version 2)
Quarter: 2013Q3

REPORT INFORMATION
  Report Type: Spontaneous
  Country: FR (occurrence: FR)
  Receive Date: 20130226
  Receipt Date: 20130806
  Transmission Date: 20140515
  Serious: Yes (Life-Threatening, Hospitalization)
  Sender: FDA-Public Use
  Company Number: FR-BIOGENIDEC-2013BI016674

PATIENT
  Age: 44 Year
  Sex: Male

DRUGS (6)
  1. TYSABRI [Suspect]
     Indication: MULTIPLE SCLEROSIS
     Route: 042
     Dates: start: 200712, end: 20101104
  2. TYSABRI [Suspect]
     Indication: MULTIPLE SCLEROSIS
     Route: 042
     Dates: start: 201108, end: 20130129
  3. LYSANXIA [Concomitant]
     Dates: start: 2006
  4. LUDIOMIL 25 [Concomitant]
     Dates: start: 2006
  5. ATARAX 25 [Concomitant]
     Dates: start: 2006
  6. STILNOX [Concomitant]
     Dates: start: 2006

REACTIONS (1)
  - B-cell lymphoma [Not Recovered/Not Resolved]
